FAERS Safety Report 7350136-0 (Version None)
Quarter: 2011Q1

REPORT INFORMATION
  Report Type: 
  Country: None (occurrence: None)
  Receive Date: 20110314
  Receipt Date: 20110303
  Transmission Date: 20110831
  Serious: Yes (Hospitalization, Other)
  Sender: FDA-Public Use
  Company Number: A0917585A

PATIENT
  Sex: Male

DRUGS (9)
  1. NORVASC [Concomitant]
  2. MONOCORDIL [Suspect]
     Indication: HYPERTENSION
     Dates: start: 20101001, end: 20110201
  3. OLMETEC [Suspect]
     Indication: HYPERTENSION
     Dosage: 40MG PER DAY
     Dates: start: 20080101
  4. ANTIDIABETIC [Concomitant]
  5. DIGOXIN [Suspect]
     Indication: HYPERTENSION
     Dates: start: 20101001, end: 20110201
  6. ARADOIS [Concomitant]
  7. LIPITOR [Concomitant]
  8. LIPLESS [Concomitant]
  9. CARVEDILOL [Concomitant]

REACTIONS (6)
  - HYPERTENSION [None]
  - TOXICITY TO VARIOUS AGENTS [None]
  - BLOOD PRESSURE DECREASED [None]
  - FATIGUE [None]
  - HYPOTENSION [None]
  - DYSPNOEA [None]
